FAERS Safety Report 17075000 (Version 1)
Quarter: 2019Q4

REPORT INFORMATION
  Report Type: Spontaneous
  Country: US (occurrence: US)
  Receive Date: 20191126
  Receipt Date: 20191126
  Transmission Date: 20200122
  Serious: No
  Sender: FDA-Public Use
  Company Number: US-JNJFOC-20191125142

PATIENT
  Age: 8 Decade
  Sex: Male
  Weight: 90.8 kg

DRUGS (5)
  1. LANTUS [Concomitant]
     Active Substance: INSULIN GLARGINE
     Indication: DIABETES MELLITUS
     Route: 065
  2. XARELTO [Suspect]
     Active Substance: RIVAROXABAN
     Dosage: 15/20 MG TWICE A DAY THEN ONCE A DAY.
     Route: 048
     Dates: start: 2018, end: 2018
  3. XARELTO [Suspect]
     Active Substance: RIVAROXABAN
     Route: 048
     Dates: start: 201910
  4. XARELTO [Suspect]
     Active Substance: RIVAROXABAN
     Indication: PRODUCT USED FOR UNKNOWN INDICATION
     Dosage: 15/20 MG TWICE A DAY THEN ONCE A DAY.
     Route: 048
     Dates: start: 2018, end: 2018
  5. FINASTERIDE. [Concomitant]
     Active Substance: FINASTERIDE
     Route: 065

REACTIONS (4)
  - Prostatomegaly [Unknown]
  - Blood urine present [Unknown]
  - Vasodilatation [Unknown]
  - Therapeutic procedure [Unknown]

NARRATIVE: CASE EVENT DATE: 2018
